FAERS Safety Report 10149729 (Version 3)
Quarter: 2014Q2

REPORT INFORMATION
  Report Type: Spontaneous
  Country: AR (occurrence: AR)
  Receive Date: 20140502
  Receipt Date: 20140527
  Transmission Date: 20141212
  Serious: Yes (Hospitalization, Other)
  Sender: FDA-Public Use
  Company Number: AR-PFIZER INC-2013241183

PATIENT
  Age: 65 Year
  Sex: Female

DRUGS (5)
  1. SUTENT [Suspect]
     Indication: GASTROINTESTINAL STROMAL TUMOUR
     Dosage: 50 MG, CYCLIC (1X/DAY, 4 WEEKS ON AND 2 WEEKS OFF)
     Dates: start: 20130514, end: 201307
  2. SUTENT [Suspect]
     Dosage: 37.5 MG, CYCLIC (20 DAYS ON, 20 DAYS OFF)
     Dates: start: 201307, end: 201311
  3. SUTENT [Suspect]
     Dosage: 25 MG, CYCLIC (ALTERNATE WEEK)
     Dates: start: 20131120
  4. SUTENT [Suspect]
     Dosage: 37.5 MG, CYCLIC (7 DAYS ON, 7 DAYS OFF)
  5. LOTRIAL [Concomitant]
     Indication: HYPERTENSION
     Dosage: 10 MG, 1X/DAY
     Dates: start: 1984

REACTIONS (8)
  - Haemorrhage [Not Recovered/Not Resolved]
  - Drug-induced liver injury [Not Recovered/Not Resolved]
  - Platelet count decreased [Recovered/Resolved]
  - Haematoma [Recovered/Resolved]
  - Blood glucose increased [Not Recovered/Not Resolved]
  - Vomiting [Not Recovered/Not Resolved]
  - Fall [Not Recovered/Not Resolved]
  - Joint injury [Not Recovered/Not Resolved]
